FAERS Safety Report 4270142-2 (Version None)
Quarter: 2004Q1

REPORT INFORMATION
  Report Type: 
  Country: None (occurrence: None)
  Receive Date: 20040114
  Receipt Date: 20030507
  Transmission Date: 20041129
  Serious: Yes (Other)
  Sender: FDA-Public Use
  Company Number: US-GLAXOSMITHKLINE-A0408075A

PATIENT
  Sex: Female

DRUGS (2)
  1. BUPROPRION HCL [Suspect]
     Indication: DEPRESSION
     Route: 048
  2. ALCOHOL [Suspect]

REACTIONS (1)
  - CONVULSION [None]
